FAERS Safety Report 8396735-9 (Version None)
Quarter: 2012Q2

REPORT INFORMATION
  Report Type: 
  Country: None (occurrence: None)
  Receive Date: 20120530
  Receipt Date: 20120521
  Transmission Date: 20120825
  Serious: Yes (Other)
  Sender: FDA-Public Use
  Company Number: US-MYLANLABS-2012S1010328

PATIENT
  Sex: Male
  Weight: 110.22 kg

DRUGS (11)
  1. DIOVAN [Concomitant]
     Indication: HYPERTENSION
     Dosage: REPORTEDLY CUTS A 320MG TAB IN HALF
  2. ALLOPURINOL [Concomitant]
     Indication: GOUT
  3. WARFARIN SODIUM [Concomitant]
  4. LEXAPRO [Concomitant]
     Indication: DEPRESSION
  5. MOTRIN [Concomitant]
  6. MORPHINE [Concomitant]
     Indication: PAIN
     Route: 048
     Dates: start: 20120301, end: 20120301
  7. FENTANYL-100 [Suspect]
     Dosage: Q72HR
     Route: 062
     Dates: start: 20120301
  8. SIMVASTATIN [Concomitant]
     Indication: HYPERLIPIDAEMIA
  9. DOXAZOSIN MESYLATE [Concomitant]
  10. GABAPENTIN [Concomitant]
  11. FENTANYL-100 [Suspect]
     Indication: PAIN
     Dosage: Q72HR
     Route: 062
     Dates: start: 20070101, end: 20120301

REACTIONS (5)
  - ABNORMAL LOSS OF WEIGHT [None]
  - LOSS OF CONSCIOUSNESS [None]
  - DIZZINESS [None]
  - LETHARGY [None]
  - DEHYDRATION [None]
